FAERS Safety Report 18669205 (Version 1)
Quarter: 2020Q4

REPORT INFORMATION
  Report Type: Spontaneous
  Country: US (occurrence: US)
  Receive Date: 20201226
  Receipt Date: 20201226
  Transmission Date: 20210114
  Serious: No
  Sender: FDA-Public Use
  Company Number: None

PATIENT
  Age: 78 Year
  Sex: Male

DRUGS (1)
  1. ERLEADA [Suspect]
     Active Substance: APALUTAMIDE
     Route: 048
     Dates: start: 202011

REACTIONS (6)
  - Rash [None]
  - Urticaria [None]
  - Chromaturia [None]
  - Urine odour abnormal [None]
  - Hot flush [None]
  - Decreased appetite [None]

NARRATIVE: CASE EVENT DATE: 20201226
